FAERS Safety Report 25933911 (Version 1)
Quarter: 2025Q4

REPORT INFORMATION
  Report Type: Spontaneous
  Country: AR (occurrence: None)
  Receive Date: 20251016
  Receipt Date: 20251016
  Transmission Date: 20260118
  Serious: No
  Sender: FDA-CTU
  Company Number: None

PATIENT
  Sex: Female

DRUGS (1)
  1. TEZSPIRE [Suspect]
     Active Substance: TEZEPELUMAB-EKKO
     Indication: Asthma
     Dosage: FREQUENCY : MONTHLY;?
     Route: 058
     Dates: start: 20250925

REACTIONS (6)
  - Asthma [None]
  - Infection [None]
  - Back pain [None]
  - Fatigue [None]
  - Arthralgia [None]
  - Headache [None]
